FAERS Safety Report 5787003-X (Version None)
Quarter: 2008Q2

REPORT INFORMATION
  Report Type: 
  Country: None (occurrence: None)
  Receive Date: 20080625
  Receipt Date: 20080417
  Transmission Date: 20081010
  Serious: No
  Sender: FDA-Public Use
  Company Number: US-BAYER-200820891NA

PATIENT
  Age: 43 Year
  Sex: Female
  Weight: 85 kg

DRUGS (6)
  1. CLIMARA [Suspect]
     Indication: DRUG USE FOR UNKNOWN INDICATION
     Route: 062
     Dates: start: 20030101
  2. WELLBUTRIN [Concomitant]
  3. ALLEGRA [Concomitant]
  4. SYNTHROID [Concomitant]
  5. METFORMIN HCL [Concomitant]
  6. SPIRONOLACTONE [Concomitant]

REACTIONS (1)
  - IRRITABILITY [None]
